FAERS Safety Report 8347482-0 (Version None)
Quarter: 2012Q2

REPORT INFORMATION
  Report Type: 
  Country: None (occurrence: None)
  Receive Date: 20120509
  Receipt Date: 20120410
  Transmission Date: 20120825
  Serious: Yes (Hospitalization)
  Sender: FDA-Public Use
  Company Number: US-ASTRAZENECA-2012SE21259

PATIENT
  Age: 80 Year
  Sex: Female

DRUGS (1)
  1. BRILINTA [Suspect]
     Indication: CATHETERISATION CARDIAC
     Dosage: BID
     Route: 048
     Dates: start: 20120101, end: 20120101

REACTIONS (1)
  - ATRIOVENTRICULAR BLOCK [None]
